FAERS Safety Report 5711497-9 (Version None)
Quarter: 2008Q2

REPORT INFORMATION
  Report Type: 
  Country: None (occurrence: None)
  Receive Date: 20080421
  Receipt Date: 20080411
  Transmission Date: 20081010
  Serious: Yes (Disabling, Other)
  Sender: FDA-Public Use
  Company Number: US-MERCK-0704USA05725

PATIENT
  Age: 44 Year
  Sex: Female

DRUGS (1)
  1. FOSAMAX [Suspect]
     Indication: OSTEOPOROSIS
     Route: 048
     Dates: start: 19900101, end: 20061001

REACTIONS (19)
  - ADVERSE EVENT [None]
  - ARTHRITIS [None]
  - ARTHROPATHY [None]
  - DENTAL CARIES [None]
  - DEPRESSION [None]
  - EDENTULOUS [None]
  - FATIGUE [None]
  - GINGIVAL DISORDER [None]
  - HEAD INJURY [None]
  - HYPERTENSION [None]
  - HYPERTHYROIDISM [None]
  - INFECTION [None]
  - JAW DISORDER [None]
  - NECK INJURY [None]
  - RESORPTION BONE INCREASED [None]
  - TEMPOROMANDIBULAR JOINT SYNDROME [None]
  - TOOTH DISORDER [None]
  - TOOTH LOSS [None]
  - TRISMUS [None]
